FAERS Safety Report 4845098-1 (Version None)
Quarter: 2005Q4

REPORT INFORMATION
  Report Type: 
  Country: None (occurrence: None)
  Receive Date: 20051205
  Receipt Date: 20051123
  Transmission Date: 20060501
  Serious: Yes (Other)
  Sender: FDA-Public Use
  Company Number: US-MERCK-0511USA04245

PATIENT
  Age: 66 Year
  Sex: Female
  Weight: 86 kg

DRUGS (10)
  1. VIOXX [Suspect]
     Indication: ARTHRITIS
     Route: 048
     Dates: start: 20000801, end: 20001001
  2. VIOXX [Suspect]
     Route: 048
     Dates: start: 20021201, end: 20030301
  3. VIOXX [Suspect]
     Route: 048
     Dates: start: 20031101, end: 20041001
  4. FIORICET TABLETS [Concomitant]
     Route: 065
  5. NEXIUM [Concomitant]
     Route: 065
  6. AMBIEN [Concomitant]
     Route: 065
  7. PROTONIX [Concomitant]
     Route: 065
  8. PLAVIX [Concomitant]
     Route: 065
  9. BENICAR [Concomitant]
     Route: 065
  10. PROMETHAZINE [Concomitant]
     Route: 065

REACTIONS (1)
  - CEREBROVASCULAR ACCIDENT [None]
